FAERS Safety Report 8509334-2 (Version None)
Quarter: 2012Q3

REPORT INFORMATION
  Report Type: 
  Country: None (occurrence: None)
  Receive Date: 20120713
  Receipt Date: 20120201
  Transmission Date: 20120928
  Serious: Yes (Death, Other)
  Sender: FDA-Public Use
  Company Number: PHHY2012CA059611

PATIENT
  Age: 5 Year
  Sex: Male
  Weight: 29 kg

DRUGS (2)
  1. ACETAMINOPHEN [Suspect]
     Indication: PROCEDURAL PAIN
  2. CODEINE SULFATE [Suspect]
     Indication: PROCEDURAL PAIN
     Dosage: 12 MG, Q4H

REACTIONS (2)
  - ANALGESIC DRUG LEVEL ABOVE THERAPEUTIC [None]
  - DEATH [None]
